FAERS Safety Report 10470278 (Version 1)
Quarter: 2014Q3

REPORT INFORMATION
  Report Type: Spontaneous
  Country: US (occurrence: None)
  Receive Date: 20140922
  Receipt Date: 20140922
  Transmission Date: 20150326
  Serious: Yes (Disabling, Other)
  Sender: FDA-Public Use
  Company Number: None

PATIENT
  Age: 21 Year
  Sex: Male
  Weight: 68.04 kg

DRUGS (1)
  1. PROSCAR [Suspect]
     Active Substance: FINASTERIDE
     Indication: ALOPECIA
     Dosage: .25  OF A PILL (1.25MG)  ONCE DAILY  TAKEN BY MOUTH
     Route: 048
     Dates: start: 20120802, end: 20121002

REACTIONS (9)
  - Erectile dysfunction [None]
  - Panic attack [None]
  - Libido disorder [None]
  - Sexual dysfunction [None]
  - Mood swings [None]
  - Depressed level of consciousness [None]
  - Depression [None]
  - Mental disorder [None]
  - Penile size reduced [None]
